FAERS Safety Report 21055415 (Version 5)
Quarter: 2022Q3

REPORT INFORMATION
  Report Type: Report from Study
  Country: US (occurrence: US)
  Receive Date: 20220708
  Receipt Date: 20220930
  Transmission Date: 20221026
  Serious: Yes (Hospitalization, Other)
  Sender: FDA-Public Use
  Company Number: US-ABBVIE-22K-163-4458366-00

PATIENT
  Sex: Male
  Weight: 76.203 kg

DRUGS (4)
  1. IMBRUVICA [Suspect]
     Active Substance: IBRUTINIB
     Indication: Central nervous system lymphoma
     Dosage: 4 TABLET
     Route: 048
     Dates: start: 2022, end: 202208
  2. IMBRUVICA [Suspect]
     Active Substance: IBRUTINIB
     Indication: Central nervous system lymphoma
     Route: 048
     Dates: start: 2022, end: 20220713
  3. PEMETREXED [Suspect]
     Active Substance: PEMETREXED
     Indication: Central nervous system lymphoma
     Route: 042
     Dates: start: 202109, end: 202208
  4. JANSSEN COVID-19 VACCINE [Concomitant]
     Active Substance: AD26.COV2.S
     Indication: COVID-19 immunisation
     Dosage: ONE IN ONCE FREQUENCY
     Route: 030
     Dates: start: 2021, end: 2021

REACTIONS (11)
  - Seizure [Not Recovered/Not Resolved]
  - Platelet count decreased [Recovered/Resolved]
  - Seizure [Recovering/Resolving]
  - Pyrexia [Recovered/Resolved]
  - Brain oedema [Not Recovered/Not Resolved]
  - Blood glucose increased [Recovered/Resolved]
  - White blood cell count decreased [Recovered/Resolved]
  - Off label use [Unknown]
  - Off label use [Not Recovered/Not Resolved]
  - Oropharyngeal pain [Recovered/Resolved]
  - Drug ineffective [Unknown]

NARRATIVE: CASE EVENT DATE: 20220101
